FAERS Safety Report 7692807-2 (Version None)
Quarter: 2011Q3

REPORT INFORMATION
  Report Type: 
  Country: None (occurrence: None)
  Receive Date: 20110819
  Receipt Date: 20110810
  Transmission Date: 20111222
  Serious: Yes (Hospitalization, Other)
  Sender: FDA-Public Use
  Company Number: US-JNJFOC-20110806504

PATIENT
  Sex: Female
  Weight: 63.5 kg

DRUGS (2)
  1. RISPERDAL CONSTA [Suspect]
     Indication: SCHIZOPHRENIA
     Route: 030
     Dates: start: 20100101
  2. RISPERIDONE [Suspect]
     Indication: SCHIZOPHRENIA
     Route: 048
     Dates: start: 20010101

REACTIONS (10)
  - CEREBROVASCULAR ACCIDENT [None]
  - JOINT STIFFNESS [None]
  - GAIT DISTURBANCE [None]
  - VISION BLURRED [None]
  - JOINT SWELLING [None]
  - SCHIZOPHRENIA [None]
  - LOSS OF CONTROL OF LEGS [None]
  - ARTHRALGIA [None]
  - MUSCULAR WEAKNESS [None]
  - HEART RATE INCREASED [None]
